FAERS Safety Report 4526205-7 (Version None)
Quarter: 2004Q4

REPORT INFORMATION
  Report Type: 
  Country: None (occurrence: None)
  Receive Date: 20041214
  Receipt Date: 20041202
  Transmission Date: 20050328
  Serious: Yes (Hospitalization)
  Sender: FDA-Public Use
  Company Number: 200414530FR

PATIENT
  Age: 73 Year
  Sex: Male

DRUGS (9)
  1. GLYBURIDE [Suspect]
     Indication: DIABETES MELLITUS NON-INSULIN-DEPENDENT
     Route: 048
     Dates: end: 20041007
  2. MALARONE [Suspect]
     Route: 048
  3. TEMESTA [Concomitant]
     Route: 048
  4. LODALES [Concomitant]
     Route: 048
  5. APROVEL [Concomitant]
     Route: 048
  6. YOHIMBINE ^HOUDE^ [Concomitant]
     Route: 048
  7. INIPOMP [Concomitant]
     Route: 048
  8. PERMIXON [Concomitant]
     Route: 048
  9. VOLTAREN [Concomitant]
     Route: 048

REACTIONS (3)
  - CONFUSIONAL STATE [None]
  - DRUG INTERACTION [None]
  - HYPOGLYCAEMIA [None]
